FAERS Safety Report 9122137 (Version 1)
Quarter: 2013Q1

REPORT INFORMATION
  Report Type: Spontaneous
  Country: US (occurrence: None)
  Receive Date: 20130125
  Receipt Date: 20130125
  Transmission Date: 20140127
  Serious: Yes (Hospitalization)
  Sender: FDA-Public Use
  Company Number: 2012US-004476

PATIENT
  Age: 50 Year
  Sex: Male
  Weight: 83.9 kg

DRUGS (11)
  1. OMONTYS (PEGINESATIDE) SOLUTION FOR INJECTION [Suspect]
     Indication: NEPHROGENIC ANAEMIA
     Route: 042
     Dates: start: 20121114, end: 20121114
  2. PHOSLO (CALCIUM ACETATE) [Concomitant]
  3. LABETALOL (LABETALOL) [Concomitant]
  4. MINOXIDIL (MINOXIDIL) [Concomitant]
  5. NEPHRO-VITE [Concomitant]
  6. ASPIRIN (ACETYLSALICYLIC ACID) [Concomitant]
  7. ZEMPLAR (PARICALCITOL) [Concomitant]
  8. PROTONIX (PANTOPRAZOLE SODIUM SESQUIHYDRATE) [Concomitant]
  9. FLOMAX (TAMSULOSIN HYDROCHLORIDE) [Concomitant]
  10. FERRLECIT (FERRIC SODIUM GLUCONATE COMPLEX) [Concomitant]
  11. HEPARIN (HEPARIN) [Concomitant]

REACTIONS (12)
  - Anaemia [None]
  - Back pain [None]
  - Muscle spasms [None]
  - Joint stiffness [None]
  - Hypokinesia [None]
  - Flank pain [None]
  - Musculoskeletal pain [None]
  - Pain in extremity [None]
  - Headache [None]
  - Asthenia [None]
  - Fatigue [None]
  - Dyspnoea [None]
